FAERS Safety Report 8342748-2 (Version None)
Quarter: 2012Q2

REPORT INFORMATION
  Report Type: 
  Country: None (occurrence: None)
  Receive Date: 20120503
  Receipt Date: 20120417
  Transmission Date: 20120825
  Serious: Yes (Hospitalization)
  Sender: FDA-Public Use
  Company Number: OTH-SPN-2012003

PATIENT
  Sex: Male

DRUGS (1)
  1. CARBAGLU [Suspect]
     Indication: AMINO ACID METABOLISM DISORDER
     Dosage: -200.000 MILLIGRAMS, TID, 1 EVERY DAY, ORAL
     Route: 048
     Dates: start: 20110323

REACTIONS (1)
  - HOSPITALISATION [None]
